FAERS Safety Report 4534086-0 (Version None)
Quarter: 2004Q4

REPORT INFORMATION
  Report Type: 
  Country: None (occurrence: None)
  Receive Date: 20041222
  Receipt Date: 20041210
  Transmission Date: 20050328
  Serious: Yes (Disabling, Other)
  Sender: FDA-Public Use
  Company Number: US-JNJFOC-20041203995

PATIENT
  Sex: Male
  Weight: 88.45 kg

DRUGS (6)
  1. REMICADE [Suspect]
     Indication: CROHN'S DISEASE
     Route: 042
  2. VALIUM [Concomitant]
     Indication: ANXIETY
  3. AMBIEN [Concomitant]
  4. LEVSIN PB [Concomitant]
  5. LONOX [Concomitant]
  6. LONOX [Concomitant]

REACTIONS (6)
  - CHEST PAIN [None]
  - COUGH [None]
  - DYSPNOEA [None]
  - PAIN [None]
  - PRURITUS [None]
  - VISION BLURRED [None]
